FAERS Safety Report 9361142 (Version 2)
Quarter: 2013Q3

REPORT INFORMATION
  Report Type: Spontaneous
  Country: IT (occurrence: IT)
  Receive Date: 20130621
  Receipt Date: 20130715
  Transmission Date: 20140515
  Serious: Yes (Hospitalization)
  Sender: FDA-Public Use
  Company Number: IT-PFIZER INC-2013185925

PATIENT
  Age: 47 Year
  Sex: Female

DRUGS (2)
  1. HALCION [Suspect]
     Indication: ANXIETY
     Dosage: UNK
     Route: 048
     Dates: start: 20130507, end: 20130507
  2. ANAFRANIL [Suspect]
     Indication: DEPRESSION
     Dosage: 15 DF, TOTAL
     Route: 048
     Dates: start: 20130507, end: 20130507

REACTIONS (2)
  - Drug abuse [Unknown]
  - Loss of consciousness [Recovering/Resolving]
